FAERS Safety Report 15906451 (Version 1)
Quarter: 2019Q1

REPORT INFORMATION
  Report Type: Spontaneous
  Country: US (occurrence: US)
  Receive Date: 20190203
  Receipt Date: 20190203
  Transmission Date: 20190417
  Serious: Yes (Hospitalization, Other)
  Sender: FDA-Public Use
  Company Number: None

PATIENT
  Age: 11 Month
  Sex: Male
  Weight: 10.8 kg

DRUGS (6)
  1. INFANTS IBUPROFEN [Suspect]
     Active Substance: IBUPROFEN
     Indication: TEETHING
     Dosage: ?          QUANTITY:1.875 ML;?
     Route: 048
     Dates: start: 20180701, end: 20190116
  2. INFANTS IBUPROFEN [Suspect]
     Active Substance: IBUPROFEN
     Indication: PYREXIA
     Dosage: ?          QUANTITY:1.875 ML;?
     Route: 048
     Dates: start: 20180701, end: 20190116
  3. CARAFATE [Concomitant]
     Active Substance: SUCRALFATE
  4. RANITIDINE. [Concomitant]
     Active Substance: RANITIDINE
  5. FERROUS SULFATE. [Concomitant]
     Active Substance: FERROUS SULFATE
  6. OMEPRAZOLE. [Concomitant]
     Active Substance: OMEPRAZOLE

REACTIONS (2)
  - Small intestinal ulcer haemorrhage [None]
  - Haemorrhagic anaemia [None]

NARRATIVE: CASE EVENT DATE: 20180701
